FAERS Safety Report 9337811 (Version 2)
Quarter: 2013Q2

REPORT INFORMATION
  Report Type: Spontaneous
  Country: RO (occurrence: RO)
  Receive Date: 20130607
  Receipt Date: 20130614
  Transmission Date: 20140414
  Serious: Yes (Hospitalization, Disabling)
  Sender: FDA-Public Use
  Company Number: RO-ABBOTT-13P-135-1098520-00

PATIENT
  Age: 55 Year
  Sex: Male
  Weight: 90 kg

DRUGS (14)
  1. HUMIRA [Suspect]
     Indication: RHEUMATOID ARTHRITIS
     Route: 058
     Dates: start: 200802, end: 20130404
  2. HUMIRA [Suspect]
     Indication: ANKYLOSING SPONDYLITIS
  3. ARAVA [Concomitant]
     Indication: RHEUMATOID ARTHRITIS
     Dosage: TABLET
     Route: 048
     Dates: start: 200607, end: 20130408
  4. NORVASC [Concomitant]
     Indication: HYPERTENSION
     Dosage: TABLET
     Route: 048
  5. TERTENSIF [Concomitant]
     Indication: HYPERTENSION
     Dosage: TABLET
     Route: 048
  6. FUROSEMID [Concomitant]
     Indication: HYPERTENSION
     Dosage: 1 TABLET AT 3 DAYS
     Route: 048
  7. DETRALEX [Concomitant]
     Indication: PERIPHERAL VASCULAR DISORDER
     Dosage: TABLET
     Route: 048
  8. CARDURA [Concomitant]
     Indication: HYPERTENSION
     Dosage: TABLET
     Route: 048
  9. OMERAN [Concomitant]
     Indication: GASTRITIS
     Dosage: CAPSULE
     Route: 048
  10. NSAIDS OINTMENT [Concomitant]
     Indication: RHEUMATOID ARTHRITIS
     Dosage: LOCALLY
  11. PACK WITH MGSO4 SOL 2% [Concomitant]
     Indication: PRODUCT USED FOR UNKNOWN INDICATION
     Dosage: LOCALLY
  12. ASA [Concomitant]
     Indication: MYOCARDIAL ISCHAEMIA
     Route: 048
  13. HYDRATE OPHTHALMIC SOLUTION [Concomitant]
     Indication: DRY EYE
     Dosage: EYE DROPS
  14. VESSEL DUE [Concomitant]
     Indication: VENOUS INSUFFICIENCY
     Dosage: CAPSULE
     Route: 048

REACTIONS (20)
  - Peripheral vascular disorder [Unknown]
  - Anal squamous cell carcinoma [Recovering/Resolving]
  - Arthralgia [Unknown]
  - Spinal pain [Unknown]
  - Spinal disorder [Unknown]
  - Dyspnoea exertional [Unknown]
  - Gastrointestinal motility disorder [Unknown]
  - Rectal tenesmus [Unknown]
  - Rheumatoid arthritis [Unknown]
  - Renal failure chronic [Unknown]
  - Myocardial ischaemia [Unknown]
  - Fibrosis [Unknown]
  - Dry eye [Unknown]
  - Hepatic steatosis [Unknown]
  - Hypercholesterolaemia [Unknown]
  - Oedema peripheral [Unknown]
  - Musculoskeletal stiffness [Unknown]
  - Angiopathy [Unknown]
  - Gastrointestinal haemorrhage [Unknown]
  - Mobility decreased [Unknown]
